FAERS Safety Report 5128798-8 (Version None)
Quarter: 2006Q4

REPORT INFORMATION
  Report Type: 
  Country: None (occurrence: None)
  Receive Date: 20061017
  Receipt Date: 20060814
  Transmission Date: 20070319
  Serious: Yes (Death, Other)
  Sender: FDA-Public Use
  Company Number: US-PURDUE-USA_2006_0024948

PATIENT
  Age: 17 Year
  Sex: Female
  Weight: 66 kg

DRUGS (4)
  1. OXYCONTIN [Suspect]
     Indication: DRUG ABUSER
     Dosage: UNK, UNK
  2. ECSTASY [Suspect]
     Indication: DRUG ABUSER
     Dosage: UNK, UNK
  3. TETRAHYDROCANNABINOL [Suspect]
     Indication: DRUG ABUSER
     Dosage: UNK, UNK
  4. UNKNOWN [Concomitant]

REACTIONS (6)
  - DRUG SCREEN POSITIVE [None]
  - EMOTIONAL DISORDER [None]
  - INJURY [None]
  - POLYTRAUMATISM [None]
  - SENSORY DISTURBANCE [None]
  - VICTIM OF HOMICIDE [None]
